FAERS Safety Report 21780093 (Version 1)
Quarter: 2022Q4

REPORT INFORMATION
  Report Type: Other
  Country: IT (occurrence: IT)
  Receive Date: 20221226
  Receipt Date: 20221226
  Transmission Date: 20230112
  Serious: Yes (Other)
  Sender: FDA-Public Use
  Company Number: None

PATIENT
  Age: 77 Year
  Sex: Male

DRUGS (5)
  1. DUTASTERIDE [Suspect]
     Active Substance: DUTASTERIDE
     Indication: Benign prostatic hyperplasia
     Dosage: 1 DOSAGE FORM (1 ALLA SERA) (CAPSULE, SOFT)
     Route: 048
     Dates: start: 20210630, end: 20220815
  2. TAMSULOSIN HYDROCHLORIDE [Suspect]
     Active Substance: TAMSULOSIN HYDROCHLORIDE
     Indication: Benign prostatic hyperplasia
     Dosage: 1 DOSAGE FORM (1 ALLA SERA)
     Route: 048
     Dates: start: 20210630, end: 20220815
  3. NEBIVOLOLO EG [Concomitant]
     Indication: Product used for unknown indication
     Dosage: 1.25 MILLIGRAM (1,25MG DOPO COLAZIONE)
     Route: 048
  4. RAMIPRIL [Concomitant]
     Active Substance: RAMIPRIL
     Indication: Product used for unknown indication
     Dosage: 1.25 MILLIGRAM (1,25 MG DOPO COLAZIONE)
     Route: 048
  5. STRIVERDI RESPIMAT [Concomitant]
     Active Substance: OLODATEROL HYDROCHLORIDE
     Indication: Product used for unknown indication
     Dosage: UNK (2 INALAZIONI LA SERA)
     Route: 048

REACTIONS (2)
  - Arrhythmia [Recovered/Resolved]
  - Headache [Recovered/Resolved]

NARRATIVE: CASE EVENT DATE: 20220701
